FAERS Safety Report 6221581-1 (Version None)
Quarter: 2009Q2

REPORT INFORMATION
  Report Type: 
  Country: None (occurrence: None)
  Receive Date: 20090610
  Receipt Date: 20081006
  Transmission Date: 20091009
  Serious: Yes (Other)
  Sender: FDA-Public Use
  Company Number: US-JNJFOC-20080804266

PATIENT
  Sex: Female
  Weight: 74.84 kg

DRUGS (12)
  1. TOPAMAX [Suspect]
     Route: 048
  2. TOPAMAX [Suspect]
     Indication: TREMOR
     Route: 048
  3. PRIMIDONE [Concomitant]
     Indication: TREMOR
     Route: 048
  4. SINGULAIR [Concomitant]
     Indication: ASTHMA
     Route: 048
  5. ALTACE [Concomitant]
     Indication: HYPERTENSION
     Route: 048
  6. PREVACID [Concomitant]
     Indication: DYSPEPSIA
     Route: 048
  7. ASPIRIN [Concomitant]
     Indication: ANTICOAGULANT THERAPY
     Route: 048
  8. METFORMIN [Concomitant]
     Indication: DIABETES MELLITUS
     Route: 048
  9. MYSOLINE [Concomitant]
  10. ALLEGRA [Concomitant]
  11. XOPENEX [Concomitant]
     Route: 055
  12. ASMANEX TWISTHALER [Concomitant]

REACTIONS (13)
  - ASTHMA [None]
  - BACK PAIN [None]
  - BLOOD GLUCOSE INCREASED [None]
  - DECREASED APPETITE [None]
  - DISTURBANCE IN ATTENTION [None]
  - DYSPEPSIA [None]
  - EYE PAIN [None]
  - FATIGUE [None]
  - MUSCLE TWITCHING [None]
  - OESOPHAGEAL PAIN [None]
  - PAIN IN EXTREMITY [None]
  - PARAESTHESIA [None]
  - WEIGHT DECREASED [None]
